FAERS Safety Report 10233822 (Version 1)
Quarter: 2014Q2

REPORT INFORMATION
  Report Type: Spontaneous
  Country: US (occurrence: US)
  Receive Date: 20140612
  Receipt Date: 20140612
  Transmission Date: 20141212
  Serious: Yes (Hospitalization)
  Sender: FDA-Public Use
  Company Number: US-TAKEDA-2014TUS004639

PATIENT
  Sex: Male

DRUGS (1)
  1. BRINTELLIX [Suspect]
     Indication: DEPRESSION
     Dosage: 10 MG, QD
     Route: 048

REACTIONS (1)
  - Arrhythmia [Unknown]
